FAERS Safety Report 12458716 (Version 2)
Quarter: 2016Q2

REPORT INFORMATION
  Report Type: Spontaneous
  Country: DE (occurrence: DE)
  Receive Date: 20160613
  Receipt Date: 20160622
  Transmission Date: 20160815
  Serious: Yes (Other)
  Sender: FDA-Public Use
  Company Number: DE-GLENMARK GENERICS (EUROPE) LTD-2016GMK023153

PATIENT

DRUGS (1)
  1. ATOVAQUON/PROGUANILHYDROCHLORID GLENMARK 250 MG /100 MG FILMTABLETTEN [Suspect]
     Active Substance: ATOVAQUONE\PROGUANIL HYDROCHLORIDE
     Indication: MALARIA PROPHYLAXIS
     Dosage: 1 DF, OD (250MG/L00 MG/DAY (EVENING AFTER DINNER)
     Route: 048
     Dates: start: 20160321, end: 20160405

REACTIONS (2)
  - Arrhythmia [Recovered/Resolved]
  - Sleep disorder [Recovered/Resolved]

NARRATIVE: CASE EVENT DATE: 20160406
